FAERS Safety Report 6204835-4 (Version None)
Quarter: 2009Q2

REPORT INFORMATION
  Report Type: 
  Country: None (occurrence: None)
  Receive Date: 20090527
  Receipt Date: 20090514
  Transmission Date: 20091009
  Serious: Yes (Hospitalization)
  Sender: FDA-Public Use
  Company Number: ES-PFIZER INC-2008023240

PATIENT
  Age: 34 Year

DRUGS (15)
  1. VORICONAZOLE [Suspect]
     Indication: ANTIFUNGAL PROPHYLAXIS
     Dosage: 372 MG, 1X/DAY
     Route: 042
     Dates: start: 20080111, end: 20080111
  2. VORICONAZOLE [Suspect]
     Dosage: 372 MG, 1X/DAY
     Route: 042
     Dates: start: 20080112, end: 20080112
  3. VORICONAZOLE [Suspect]
     Dosage: 248 MG, 1X/DAY
     Route: 042
     Dates: start: 20080112, end: 20080112
  4. VORICONAZOLE [Suspect]
     Dosage: 248 MG, 1X/DAY
     Route: 042
     Dates: start: 20080113, end: 20080113
  5. VORICONAZOLE [Suspect]
     Dosage: 200 MG, 1X/DAY
     Route: 048
     Dates: start: 20080113, end: 20080113
  6. VORICONAZOLE [Suspect]
     Dosage: 200 MG, 2X/DAY
     Route: 048
     Dates: start: 20080114, end: 20080217
  7. FLUCONAZOLE [Suspect]
     Route: 048
  8. CELLCEPT [Concomitant]
     Route: 048
  9. ACFOL [Concomitant]
     Route: 048
  10. OMEPRAZOLE [Concomitant]
     Route: 048
  11. ALPRAZOLAM [Concomitant]
     Route: 048
  12. PENTAMIDINE ISETHIONATE [Concomitant]
     Route: 048
  13. SALINA [Concomitant]
     Route: 042
  14. POTASSIUM CHLORIDE [Concomitant]
     Route: 042
  15. CHLORPROMAZINE [Concomitant]
     Route: 042

REACTIONS (5)
  - CYTOMEGALOVIRUS INFECTION [None]
  - ESCHERICHIA INFECTION [None]
  - GRAFT VERSUS HOST DISEASE [None]
  - NAUSEA [None]
  - VOMITING [None]
